FAERS Safety Report 17779696 (Version 3)
Quarter: 2021Q4

REPORT INFORMATION
  Report Type: Other
  Country: DE (occurrence: DE)
  Receive Date: 20200513
  Receipt Date: 20211027
  Transmission Date: 20220303
  Serious: Yes (Death, Other)
  Sender: FDA-Public Use
  Company Number: DE-SA-2020SA107799

PATIENT

DRUGS (13)
  1. BUSULFAN [Suspect]
     Active Substance: BUSULFAN
     Indication: T-cell prolymphocytic leukaemia
     Dosage: PATIENT RECEIVED TOTAL 12 CYCLES OF BUSULFAN (FBCREGIMEN)
     Route: 065
  2. BUSULFAN [Suspect]
     Active Substance: BUSULFAN
     Indication: Immunosuppressant drug therapy
     Dosage: UNK
     Route: 065
  3. BUSULFAN [Suspect]
     Active Substance: BUSULFAN
     Indication: Bone marrow conditioning regimen
  4. CYCLOSPORINE [Suspect]
     Active Substance: CYCLOSPORINE
     Indication: Prophylaxis against graft versus host disease
     Dosage: 200 NANOGRAM PER MILLLIITER, QD QD; TARGET LEVEL OF 200 NG/ML/DAY
     Route: 065
  5. MYCOPHENOLATE MOFETIL [Suspect]
     Active Substance: MYCOPHENOLATE MOFETIL
     Indication: Prophylaxis against graft versus host disease
     Dosage: UNK, QD
     Route: 065
  6. FLUDARABINE PHOSPHATE [Suspect]
     Active Substance: FLUDARABINE PHOSPHATE
     Indication: T-cell prolymphocytic leukaemia
     Dosage: PATIENT RECEIVED TOTAL 12 CYCLES OF FLUDARABINE (FBCREGIMEN)
     Route: 065
  7. FLUDARABINE PHOSPHATE [Suspect]
     Active Substance: FLUDARABINE PHOSPHATE
     Indication: Immunosuppressant drug therapy
  8. FLUDARABINE PHOSPHATE [Suspect]
     Active Substance: FLUDARABINE PHOSPHATE
     Indication: Bone marrow conditioning regimen
  9. ALEMTUZUMAB [Suspect]
     Active Substance: ALEMTUZUMAB
     Indication: Immunosuppressant drug therapy
     Dosage: QW; 3,10,30 MG/48 HOURS WEEKLY
     Route: 041
  10. ALEMTUZUMAB [Suspect]
     Active Substance: ALEMTUZUMAB
     Indication: T-cell prolymphocytic leukaemia
     Dosage: 30 MG/48 HOURS WEEKLY
     Route: 041
  11. CYCLOPHOSPHAMIDE [Suspect]
     Active Substance: CYCLOPHOSPHAMIDE
     Indication: Immunosuppressant drug therapy
     Dosage: PATIENT RECEIVED TOTAL 12 CYCLES OF CYCLOPHOSPHAMIDE (FBC REGIMEN)
     Route: 065
  12. CYCLOPHOSPHAMIDE [Suspect]
     Active Substance: CYCLOPHOSPHAMIDE
     Indication: T-cell prolymphocytic leukaemia
  13. CYCLOPHOSPHAMIDE [Suspect]
     Active Substance: CYCLOPHOSPHAMIDE
     Indication: Bone marrow conditioning regimen

REACTIONS (4)
  - Disease progression [Fatal]
  - T-cell prolymphocytic leukaemia [Fatal]
  - Cytomegalovirus infection reactivation [Fatal]
  - Septic shock [Fatal]
